FAERS Safety Report 4514285-4 (Version None)
Quarter: 2004Q4

REPORT INFORMATION
  Report Type: 
  Country: None (occurrence: None)
  Receive Date: 20041126
  Receipt Date: 20041020
  Transmission Date: 20050328
  Serious: No
  Sender: FDA-Public Use
  Company Number: 2004IM000958

PATIENT
  Age: 57 Year
  Sex: Male

DRUGS (2)
  1. INFERGEN [Suspect]
     Indication: HEPATITIS C
     Dosage: 15 UG; QD; SUBCUTANEOUS
     Route: 058
     Dates: start: 20040908, end: 20041001
  2. RIBAVIRIN [Suspect]
     Indication: HEPATITIS C
     Dosage: 600 MG; BID; ORAL
     Route: 048
     Dates: start: 20040908, end: 20041001

REACTIONS (5)
  - ANAEMIA [None]
  - DILATATION ATRIAL [None]
  - DILATATION VENTRICULAR [None]
  - NEUTROPENIA [None]
  - PULMONARY HYPERTENSION [None]
